FAERS Safety Report 4928431-1 (Version None)
Quarter: 2006Q1

REPORT INFORMATION
  Report Type: 
  Country: None (occurrence: None)
  Receive Date: 20060223
  Receipt Date: 20060208
  Transmission Date: 20060701
  Serious: Yes (Hospitalization)
  Sender: FDA-Public Use
  Company Number: 8014958

PATIENT
  Age: 22 Year
  Sex: Male

DRUGS (4)
  1. DEXTROMETHORPHAN HYDROBROMIDE [Suspect]
     Dosage: ONCE PO
     Route: 048
  2. LITHIUM [Suspect]
     Indication: BIPOLAR DISORDER
     Dosage: 60 MG 2/D PO
     Route: 048
  3. FLUOXETINE HCL [Suspect]
     Indication: BIPOLAR DISORDER
     Dosage: 20 MG /D PO
     Route: 048
  4. CLONAZEPAM [Concomitant]

REACTIONS (6)
  - DRUG ABUSER [None]
  - DRUG TOXICITY [None]
  - FLUSHING [None]
  - HYPERTHERMIA [None]
  - INTENTIONAL DRUG MISUSE [None]
  - SEROTONIN SYNDROME [None]
